FAERS Safety Report 25937032 (Version 1)
Quarter: 2025Q4

REPORT INFORMATION
  Report Type: Spontaneous
  Country: GB (occurrence: GB)
  Receive Date: 20251017
  Receipt Date: 20251017
  Transmission Date: 20260118
  Serious: Yes (Death)
  Sender: JUBILANT
  Company Number: GB-JUBILANT PHARMA LTD-2025GB001104

PATIENT
  Age: 60 Year
  Sex: Male

DRUGS (4)
  1. SILDENAFIL CITRATE [Suspect]
     Active Substance: SILDENAFIL CITRATE
     Indication: High risk sexual behaviour
     Dosage: UNK, UNK
     Route: 065
  2. ETHYL CHLORIDE [Suspect]
     Active Substance: ETHYL CHLORIDE
     Indication: High risk sexual behaviour
     Dosage: UNK,  UNK
     Route: 065
  3. OXYBATE [Suspect]
     Active Substance: OXYBATE
     Indication: High risk sexual behaviour
     Dosage: UNK, UNK
  4. METHAMPHETAMINE [Suspect]
     Active Substance: METHAMPHETAMINE
     Indication: High risk sexual behaviour
     Dosage: UNK, UNK

REACTIONS (1)
  - Toxicity to various agents [Fatal]
